FAERS Safety Report 4626100-9 (Version None)
Quarter: 2005Q1

REPORT INFORMATION
  Report Type: 
  Country: None (occurrence: None)
  Receive Date: 20050330
  Receipt Date: 20050311
  Transmission Date: 20050727
  Serious: Yes (Hospitalization)
  Sender: FDA-Public Use
  Company Number: FR_050205833

PATIENT
  Age: 85 Year
  Sex: Female

DRUGS (12)
  1. EVISTA [Suspect]
     Indication: OSTEOPOROSIS
     Dosage: 60 MG DAY
     Dates: start: 20040820, end: 20041210
  2. ISOPTIN [Concomitant]
  3. PRAXILENE (NAFTIDROFURYL OXALATE) [Concomitant]
  4. TAREG (VALSARTAN) [Concomitant]
  5. PLAVIX [Concomitant]
  6. ENDOTELON [Concomitant]
  7. ZYLORIC / SCH/ (ALLOPURINOL RHONE-POULENC) [Concomitant]
  8. DI-ANTALVIC [Concomitant]
  9. ALDALIX [Concomitant]
  10. ATORVASTATIN CALCIUM [Concomitant]
  11. PLAQUENIL [Concomitant]
  12. INSULIN [Concomitant]

REACTIONS (2)
  - ACUTE PULMONARY OEDEMA [None]
  - MYOCARDIAL INFARCTION [None]
